FAERS Safety Report 13009071 (Version 1)
Quarter: 2016Q4

REPORT INFORMATION
  Report Type: Spontaneous
  Country: CA (occurrence: CA)
  Receive Date: 20161208
  Receipt Date: 20161208
  Transmission Date: 20170207
  Serious: No
  Sender: FDA-Public Use
  Company Number: CA-WARNER CHILCOTT, LLC-1060563

PATIENT
  Sex: Female

DRUGS (11)
  1. CELEBREX [Suspect]
     Active Substance: CELECOXIB
     Route: 048
  2. CIMZIA [Suspect]
     Active Substance: CERTOLIZUMAB PEGOL
     Route: 058
  3. ENBREL [Suspect]
     Active Substance: ETANERCEPT
     Route: 048
  4. ACTEMRA [Suspect]
     Active Substance: TOCILIZUMAB
  5. SIMPONI [Suspect]
     Active Substance: GOLIMUMAB
     Route: 058
  6. ACTONEL [Suspect]
     Active Substance: RISEDRONATE SODIUM
     Route: 048
  7. PREDNISONE. [Suspect]
     Active Substance: PREDNISONE
     Route: 065
  8. PROLIA [Concomitant]
     Active Substance: DENOSUMAB
  9. METHOTREXATE. [Concomitant]
     Active Substance: METHOTREXATE
  10. ARAVA [Suspect]
     Active Substance: LEFLUNOMIDE
  11. ORENCIA [Suspect]
     Active Substance: ABATACEPT
     Route: 065

REACTIONS (5)
  - Fracture [Unknown]
  - Drug ineffective [Unknown]
  - Immobile [Unknown]
  - Osteoporosis [Unknown]
  - Bedridden [Unknown]
